FAERS Safety Report 7576743-8 (Version None)
Quarter: 2011Q2

REPORT INFORMATION
  Report Type: 
  Country: None (occurrence: None)
  Receive Date: 20110624
  Receipt Date: 20110624
  Transmission Date: 20111010
  Serious: No
  Sender: FDA-Public Use
  Company Number: None

PATIENT
  Age: 50 Year
  Sex: Female
  Weight: 147.419 kg

DRUGS (2)
  1. CYMBALTA [Suspect]
     Indication: WEIGHT DECREASED
     Dosage: 60 MG ONCE A DAY PO
     Route: 048
     Dates: start: 20110501, end: 20110601
  2. CYMBALTA [Suspect]
     Indication: MAJOR DEPRESSION
     Dosage: 90 MG ONCE A DAY PO
     Route: 048
     Dates: start: 20110301, end: 20110601

REACTIONS (4)
  - ANGER [None]
  - WITHDRAWAL SYNDROME [None]
  - WEIGHT INCREASED [None]
  - ABNORMAL BEHAVIOUR [None]
